FAERS Safety Report 8988513 (Version 1)
Quarter: 2012Q4

REPORT INFORMATION
  Report Type: Spontaneous
  Country: US (occurrence: None)
  Receive Date: 20121224
  Receipt Date: 20121224
  Transmission Date: 20130627
  Serious: No
  Sender: FDA-Public Use
  Company Number: None

PATIENT
  Age: 23 Year
  Sex: Male
  Weight: 63.5 kg

DRUGS (1)
  1. CITALOPRAM 20MG DR REDDYS [Suspect]
     Indication: POST-TRAUMATIC STRESS DISORDER
     Dosage: 1PER DAY  1  PO
     Route: 048
     Dates: start: 20120626, end: 20121219

REACTIONS (2)
  - Drug screen positive [None]
  - Legal problem [None]
